FAERS Safety Report 23106466 (Version 1)
Quarter: 2023Q4

REPORT INFORMATION
  Report Type: Spontaneous
  Country: CN (occurrence: CN)
  Receive Date: 20231025
  Receipt Date: 20231025
  Transmission Date: 20240109
  Serious: Yes (Hospitalization, Other)
  Sender: FDA-Public Use
  Company Number: CN-BAYER-2023A150022

PATIENT
  Age: 5 Year
  Sex: Female

DRUGS (9)
  1. RIVAROXABAN [Suspect]
     Active Substance: RIVAROXABAN
     Indication: Antiphospholipid syndrome
     Dosage: 2.5 MG, BID
     Route: 048
  2. ASPIRIN [Suspect]
     Active Substance: ASPIRIN
     Indication: Antiphospholipid syndrome
     Dosage: 75 MG, QD
     Route: 048
  3. ASPIRIN [Suspect]
     Active Substance: ASPIRIN
     Dosage: 50 MG, QD
     Route: 048
  4. WARFARIN SODIUM [Suspect]
     Active Substance: WARFARIN SODIUM
     Indication: Antiphospholipid syndrome
     Dosage: 1.5 MG, QD
  5. NADROPARIN CALCIUM [Suspect]
     Active Substance: NADROPARIN CALCIUM
     Indication: Anticoagulant therapy
     Dosage: 1500 IU, BID
  6. NADROPARIN CALCIUM [Suspect]
     Active Substance: NADROPARIN CALCIUM
     Indication: Antiphospholipid syndrome
  7. SODIUM CHLORIDE [Concomitant]
     Active Substance: SODIUM CHLORIDE
     Indication: Nasal dryness
  8. HYDROXYCHLOROQUINE SULFATE [Concomitant]
     Active Substance: HYDROXYCHLOROQUINE SULFATE
     Indication: Antiphospholipid syndrome
     Dosage: 0.1 G, QD
     Route: 048
  9. HYDROXYCHLOROQUINE SULFATE [Concomitant]
     Active Substance: HYDROXYCHLOROQUINE SULFATE
     Indication: Antiphospholipid syndrome
     Dosage: 0.1 G, QD
     Route: 048

REACTIONS (3)
  - Erythema multiforme [Recovered/Resolved]
  - Epistaxis [Unknown]
  - Off label use [Unknown]
